FAERS Safety Report 4593518-2 (Version None)
Quarter: 2005Q1

REPORT INFORMATION
  Report Type: 
  Country: None (occurrence: None)
  Receive Date: 20050224
  Receipt Date: 20040811
  Transmission Date: 20050727
  Serious: No
  Sender: FDA-Public Use
  Company Number: US-BRISTOL-MYERS SQUIBB COMPANY-12675153

PATIENT
  Age: 51 Year
  Sex: Female

DRUGS (2)
  1. EXCEDRIN (MIGRAINE) [Suspect]
     Indication: HEADACHE
     Dosage: DOSAGE TAKEN: TWO TABLETS A DAY, SOME DAYS HAVE TAKEN UP TO EIGHT TABLETS.
  2. EXCEDRIN (MIGRAINE) [Suspect]
     Indication: MIGRAINE
     Dosage: DOSAGE TAKEN: TWO TABLETS A DAY, SOME DAYS HAVE TAKEN UP TO EIGHT TABLETS.

REACTIONS (1)
  - MEDICATION ERROR [None]
